FAERS Safety Report 6640480-4 (Version None)
Quarter: 2010Q1

REPORT INFORMATION
  Report Type: 
  Country: None (occurrence: None)
  Receive Date: 20100318
  Receipt Date: 20100306
  Transmission Date: 20100710
  Serious: Yes (Other)
  Sender: FDA-Public Use
  Company Number: CZ-PFIZER INC-2010030827

PATIENT
  Age: 30 Year
  Sex: Female

DRUGS (7)
  1. GENOTROPIN [Suspect]
     Dosage: UNK, 1X/DAY
     Route: 058
     Dates: start: 20080101
  2. DOSTINEX [Concomitant]
     Dosage: UNK, TWICE A WEEK
  3. HYDROCORTISON [Concomitant]
     Dosage: 0.25 MG, 1X/DAY
     Route: 048
  4. KALNORMIN [Concomitant]
     Dosage: UNK, 2X/DAY
     Route: 048
  5. LETROX [Concomitant]
     Dosage: DAILY
  6. ESTRADIOL VALERATE/NORETHISTERONE ENANTATE/ [Concomitant]
     Dosage: UNK, DAILY
  7. MINIRIN [Concomitant]
     Dosage: UNK, 2X/DAY

REACTIONS (3)
  - DRY SKIN [None]
  - SKIN EXFOLIATION [None]
  - WEIGHT INCREASED [None]
